FAERS Safety Report 15074973 (Version 1)
Quarter: 2018Q2

REPORT INFORMATION
  Report Type: Report from Study
  Country: US (occurrence: US)
  Receive Date: 20180627
  Receipt Date: 20180627
  Transmission Date: 20180711
  Serious: No
  Sender: FDA-Public Use
  Company Number: US-SAOL THERAPEUTICS-2017SAO01722

PATIENT
  Age: 55 Year
  Sex: Female
  Weight: 53.52 kg

DRUGS (9)
  1. BUPIVACAINE. [Suspect]
     Active Substance: BUPIVACAINE
     Dosage: 5.367 MG, \DAY
     Route: 037
     Dates: start: 20120207, end: 20120214
  2. BUPIVACAINE. [Suspect]
     Active Substance: BUPIVACAINE
     Dosage: 4.02 MG, \DAY
     Route: 037
     Dates: start: 20120214, end: 20120622
  3. DILAUDID [Suspect]
     Active Substance: HYDROMORPHONE HYDROCHLORIDE
     Dosage: 0.400 MG, \DAY
     Route: 037
     Dates: start: 20120207, end: 20120214
  4. DILAUDID [Suspect]
     Active Substance: HYDROMORPHONE HYDROCHLORIDE
     Dosage: 0.299 MG, \DAY
     Route: 037
     Dates: start: 20120622
  5. COMPOUNDED BACLOFEN [Suspect]
     Active Substance: BACLOFEN
     Dosage: 60.01 ?G, \DAY
     Route: 037
     Dates: start: 20120214, end: 20120622
  6. DILAUDID [Suspect]
     Active Substance: HYDROMORPHONE HYDROCHLORIDE
     Dosage: 0.300 MG, \DAY
     Route: 037
     Dates: start: 20120214, end: 20120622
  7. BUPIVACAINE. [Suspect]
     Active Substance: BUPIVACAINE
     Dosage: 3.599 MG, \DAY
     Route: 037
     Dates: start: 20120622
  8. COMPOUNDED BACLOFEN [Suspect]
     Active Substance: BACLOFEN
     Dosage: 59.98 ?G, \DAY
     Route: 037
     Dates: start: 20120622
  9. COMPOUNDED BACLOFEN [Suspect]
     Active Substance: BACLOFEN
     Dosage: 80.10 ?G, \DAY
     Route: 037
     Dates: start: 20120207, end: 20120214

REACTIONS (2)
  - Pain [Unknown]
  - Drug dose omission [Recovered/Resolved]

NARRATIVE: CASE EVENT DATE: 2012
